FAERS Safety Report 6186104-4 (Version None)
Quarter: 2009Q2

REPORT INFORMATION
  Report Type: 
  Country: None (occurrence: None)
  Receive Date: 20090507
  Receipt Date: 20090507
  Transmission Date: 20091009
  Serious: No
  Sender: FDA-Public Use
  Company Number: None

PATIENT
  Age: 31 Year
  Sex: Female
  Weight: 54.4316 kg

DRUGS (2)
  1. METROGEL [Suspect]
     Indication: VAGINITIS BACTERIAL
     Dosage: 1 APPLICATOR FULL AT BEDTIME ONCE A NIGHT 5 NIGHTS
     Dates: start: 20090501, end: 20090505
  2. VAGINAL [Concomitant]

REACTIONS (9)
  - BURNING SENSATION [None]
  - MUSCLE SPASMS [None]
  - PAIN [None]
  - POLLAKIURIA [None]
  - PRODUCT FORMULATION ISSUE [None]
  - URETHRAL DISORDER [None]
  - VAGINAL DISCHARGE [None]
  - VULVOVAGINAL BURNING SENSATION [None]
  - VULVOVAGINAL DRYNESS [None]
